FAERS Safety Report 15017669 (Version 1)
Quarter: 2018Q2

REPORT INFORMATION
  Report Type: Spontaneous
  Country: US (occurrence: US)
  Receive Date: 20180615
  Receipt Date: 20180615
  Transmission Date: 20180711
  Serious: Yes (Hospitalization, Other)
  Sender: FDA-Public Use
  Company Number: US-JNJFOC-20180610631

PATIENT
  Age: 67 Year
  Sex: Male
  Weight: 49.9 kg

DRUGS (5)
  1. SYMBICORT [Concomitant]
     Active Substance: BUDESONIDE\FORMOTEROL FUMARATE DIHYDRATE
     Indication: CHRONIC OBSTRUCTIVE PULMONARY DISEASE
     Dosage: 160/10.2 2 PUFFS MORNING AND EVENINGS
     Route: 065
     Dates: start: 2008
  2. XARELTO [Suspect]
     Active Substance: RIVAROXABAN
     Indication: PROTHROMBIN TIME PROLONGED
     Route: 048
  3. XARELTO [Suspect]
     Active Substance: RIVAROXABAN
     Indication: HAEMATOCRIT INCREASED
     Route: 048
     Dates: start: 2013, end: 201506
  4. XARELTO [Suspect]
     Active Substance: RIVAROXABAN
     Indication: HAEMATOCRIT INCREASED
     Route: 048
  5. XARELTO [Suspect]
     Active Substance: RIVAROXABAN
     Indication: PROTHROMBIN TIME PROLONGED
     Route: 048
     Dates: start: 2013, end: 201506

REACTIONS (11)
  - Sepsis [Recovering/Resolving]
  - Ventricular extrasystoles [Recovered/Resolved]
  - Deep vein thrombosis [Recovered/Resolved]
  - Bronchitis viral [Recovering/Resolving]
  - Chronic obstructive pulmonary disease [Recovering/Resolving]
  - Spinal fracture [Not Recovered/Not Resolved]
  - Off label use [Unknown]
  - Product use in unapproved indication [Unknown]
  - Orthostatic hypotension [Recovered/Resolved]
  - Pulmonary embolism [Recovered/Resolved]
  - Inguinal hernia [Not Recovered/Not Resolved]

NARRATIVE: CASE EVENT DATE: 2013
